FAERS Safety Report 6157885-0 (Version None)
Quarter: 2009Q2

REPORT INFORMATION
  Report Type: 
  Country: None (occurrence: None)
  Receive Date: 20090414
  Receipt Date: 20090402
  Transmission Date: 20091009
  Serious: Yes (Other)
  Sender: FDA-Public Use
  Company Number: ACO_00531_2009

PATIENT
  Sex: Male

DRUGS (4)
  1. TIZANIDINE HCL [Suspect]
     Indication: CERVICOBRACHIAL SYNDROME
     Dosage: (3 MG ORAL)
     Route: 048
     Dates: start: 20070428
  2. EPADEL (EPADEL - ETHINYL ICOSAPENTATE) (NOT SPECIFIED) [Suspect]
     Indication: HYPERCHOLESTEROLAEMIA
     Dosage: (1800 MG ORAL)
     Route: 048
     Dates: start: 20080428, end: 20080718
  3. NIFEDIPINE [Concomitant]
  4. MAGNESIUM OXIDE [Concomitant]

REACTIONS (3)
  - BLOOD PRESSURE INCREASED [None]
  - RETINAL HAEMORRHAGE [None]
  - VISUAL ACUITY REDUCED [None]
